FAERS Safety Report 10065684 (Version 2)
Quarter: 2014Q2

REPORT INFORMATION
  Report Type: Spontaneous
  Country: JP (occurrence: JP)
  Receive Date: 20140408
  Receipt Date: 20140604
  Transmission Date: 20141212
  Serious: Yes (Hospitalization)
  Sender: FDA-Public Use
  Company Number: JP-BAXTER-2014BAX016580

PATIENT
  Age: 60 Year
  Sex: Male

DRUGS (16)
  1. IFOSFAMIDE FOR INJECTION [Suspect]
     Indication: PLASMABLASTIC LYMPHOMA
     Route: 041
     Dates: start: 20140304
  2. IFOSFAMIDE FOR INJECTION [Suspect]
     Route: 041
     Dates: start: 20140305
  3. IFOSFAMIDE FOR INJECTION [Suspect]
     Route: 041
     Dates: start: 20140306
  4. UROMITEXAN 400 MG [Suspect]
     Indication: PROPHYLAXIS
     Route: 041
     Dates: start: 20140304, end: 20140307
  5. CARBOPLATIN [Concomitant]
     Indication: PLASMABLASTIC LYMPHOMA
     Route: 041
     Dates: start: 20140304, end: 20140304
  6. ETOPOSIDE [Concomitant]
     Indication: PLASMABLASTIC LYMPHOMA
     Route: 041
     Dates: start: 20140304
  7. ETOPOSIDE [Concomitant]
     Route: 041
     Dates: start: 20140305
  8. ETOPOSIDE [Concomitant]
     Route: 041
     Dates: start: 20140306
  9. DEXAMETHASONE SODIUM PHOSPHATE [Concomitant]
     Indication: PLASMABLASTIC LYMPHOMA
     Route: 041
     Dates: start: 20140304
  10. DEXAMETHASONE SODIUM PHOSPHATE [Concomitant]
     Route: 041
     Dates: start: 20140305
  11. DEXAMETHASONE SODIUM PHOSPHATE [Concomitant]
     Route: 041
     Dates: start: 20140306
  12. FUROSEMIDE [Concomitant]
     Indication: URINE OUTPUT DECREASED
     Route: 041
     Dates: start: 20140305
  13. FUROSEMIDE [Concomitant]
     Indication: OEDEMA PERIPHERAL
     Route: 041
     Dates: start: 20140306
  14. ACETAMINOPHEN [Concomitant]
     Indication: BODY TEMPERATURE INCREASED
     Dosage: 2 TABLETS
     Route: 048
  15. HYDROCORTISONE SODIUM SUCCINATE [Concomitant]
     Indication: BODY TEMPERATURE INCREASED
     Route: 041
  16. MEROPENEM HYDRATE [Concomitant]
     Indication: PYREXIA
     Route: 065

REACTIONS (1)
  - Encephalopathy [Recovered/Resolved]
